FAERS Safety Report 6011696-5 (Version None)
Quarter: 2008Q4

REPORT INFORMATION
  Report Type: 
  Country: None (occurrence: None)
  Receive Date: 20081218
  Receipt Date: 19870408
  Transmission Date: 20090506
  Serious: Yes (Death, Life-Threatening)
  Sender: FDA-Public Use
  Company Number: GB-ROCHE-870150544001

PATIENT
  Age: 56 Year
  Sex: Female

DRUGS (4)
  1. INTERFERON ALFA-2A [Suspect]
     Indication: MALIGNANT MELANOMA
     Route: 030
     Dates: start: 19860516, end: 19860605
  2. INTERFERON ALFA-2A [Suspect]
     Route: 030
     Dates: start: 19860516, end: 19860605
  3. ETRETINATE [Suspect]
     Indication: MALIGNANT MELANOMA
     Route: 048
     Dates: start: 19860516, end: 19860605
  4. ETRETINATE [Suspect]
     Route: 048
     Dates: start: 19860516, end: 19860605

REACTIONS (3)
  - CEREBROVASCULAR ACCIDENT [None]
  - DISEASE PROGRESSION [None]
  - LOBAR PNEUMONIA [None]
